FAERS Safety Report 13876261 (Version 2)
Quarter: 2017Q3

REPORT INFORMATION
  Report Type: Spontaneous
  Country: FR (occurrence: FR)
  Receive Date: 20170817
  Receipt Date: 20170823
  Transmission Date: 20171127
  Serious: Yes (Other)
  Sender: FDA-Public Use
  Company Number: FR-ACCORD-057214

PATIENT
  Age: 62 Year
  Sex: Male

DRUGS (5)
  1. OXALIPLATIN ACCORD [Suspect]
     Active Substance: OXALIPLATIN
     Indication: COLON CANCER
     Dosage: 117 MG ONE SINGLE INTAKE
     Route: 042
     Dates: start: 20170627, end: 20170627
  2. POLARAMINE [Suspect]
     Active Substance: DEXCHLORPHENIRAMINE MALEATE
     Indication: PROPHYLAXIS
     Dosage: 5 MG ONE SINGLE INTAKE
     Route: 042
     Dates: start: 20170627, end: 20170627
  3. ZOPHREN [Suspect]
     Active Substance: ONDANSETRON
     Indication: PROPHYLAXIS
     Dosage: 8 MG ONE SINGLE INTAKE
     Route: 042
     Dates: start: 20170627, end: 20170627
  4. FOLINIC ACID [Suspect]
     Active Substance: LEUCOVORIN
     Indication: COLON CANCER
     Dosage: 780 MG ONE SINGLE INTAKE
     Route: 042
     Dates: start: 20170627, end: 20170627
  5. SOLU-MEDROL [Suspect]
     Active Substance: METHYLPREDNISOLONE SODIUM SUCCINATE
     Indication: PROPHYLAXIS
     Dosage: 60 MG ONE SINGLE INTAKE
     Route: 042
     Dates: start: 20170627, end: 20170627

REACTIONS (6)
  - Acute coronary syndrome [Recovered/Resolved with Sequelae]
  - Hypersensitivity [Unknown]
  - Malaise [Recovered/Resolved]
  - Vomiting [Recovered/Resolved]
  - Hyperhidrosis [Recovered/Resolved]
  - Nausea [Unknown]

NARRATIVE: CASE EVENT DATE: 20170627
